FAERS Safety Report 9553609 (Version 1)
Quarter: 2013Q3

REPORT INFORMATION
  Report Type: Spontaneous
  Country: US (occurrence: None)
  Receive Date: 20130924
  Receipt Date: 20130924
  Transmission Date: 20140515
  Serious: No
  Sender: FDA-Public Use
  Company Number: None

PATIENT
  Age: 27 Year
  Sex: Female
  Weight: 97.52 kg

DRUGS (1)
  1. OXYMETAZOLINE HCL [Suspect]

REACTIONS (6)
  - Wrong technique in drug usage process [None]
  - Burning sensation [None]
  - Burning sensation [None]
  - Feeling abnormal [None]
  - Paraesthesia oral [None]
  - Pharyngeal disorder [None]
